FAERS Safety Report 10937978 (Version 2)
Quarter: 2015Q2

REPORT INFORMATION
  Report Type: Spontaneous
  Country: US (occurrence: US)
  Receive Date: 20150321
  Receipt Date: 20150525
  Transmission Date: 20150821
  Serious: No
  Sender: FDA-Public Use
  Company Number: US-JNJFOC-20140607232

PATIENT
  Sex: Female
  Weight: 99.79 kg

DRUGS (2)
  1. STELARA [Suspect]
     Active Substance: USTEKINUMAB
     Indication: PSORIASIS
     Route: 058
     Dates: start: 2013
  2. STELARA [Suspect]
     Active Substance: USTEKINUMAB
     Indication: ARTHRITIS
     Route: 058
     Dates: start: 2013

REACTIONS (3)
  - Upper respiratory tract infection [Recovered/Resolved]
  - Food allergy [Not Recovered/Not Resolved]
  - Staphylococcal infection [Recovered/Resolved]

NARRATIVE: CASE EVENT DATE: 2013
